FAERS Safety Report 5602576-5 (Version None)
Quarter: 2008Q1

REPORT INFORMATION
  Report Type: 
  Country: None (occurrence: None)
  Receive Date: 20080125
  Receipt Date: 20080114
  Transmission Date: 20080703
  Serious: Yes (Hospitalization)
  Sender: FDA-Public Use
  Company Number: DE-ROCHE-541587

PATIENT
  Sex: Male

DRUGS (8)
  1. DIAZEPAM [Suspect]
     Indication: DRUG DEPENDENCE
     Route: 048
     Dates: end: 20030602
  2. APONAL [Suspect]
     Indication: RESTLESSNESS
     Route: 048
     Dates: start: 20030602
  3. METHADON [Suspect]
     Dosage: INDICATION REPORTED AS SUBSTITUTION
     Route: 048
  4. LOCAL ANESTHETIC [Suspect]
     Route: 058
     Dates: start: 20030601, end: 20030601
  5. SOBELIN [Suspect]
     Indication: OPEN WOUND
     Route: 048
     Dates: start: 20030602, end: 20030603
  6. NOVALGIN [Suspect]
     Route: 048
     Dates: start: 20030602
  7. TIMONIL [Suspect]
     Indication: DRUG USE FOR UNKNOWN INDICATION
     Route: 048
     Dates: start: 20030602
  8. 1 CONCOMITANT DRUG [Suspect]
     Indication: DRUG USE FOR UNKNOWN INDICATION
     Dosage: DRUG REPORTED AS MG-BRAUSE
     Route: 048
     Dates: start: 20030602

REACTIONS (1)
  - ERYTHEMA MULTIFORME [None]
